FAERS Safety Report 7568195-9 (Version None)
Quarter: 2011Q2

REPORT INFORMATION
  Report Type: 
  Country: None (occurrence: None)
  Receive Date: 20110623
  Receipt Date: 20110614
  Transmission Date: 20111010
  Serious: Yes (Hospitalization)
  Sender: FDA-Public Use
  Company Number: FR-PFIZER INC-2011138468

PATIENT
  Age: 83 Year
  Sex: Female

DRUGS (8)
  1. BISOPROLOL FUMARATE [Concomitant]
     Indication: ACUTE CORONARY SYNDROME
     Dosage: 1.25 MG, UNK
  2. RAMIPRIL [Concomitant]
     Indication: ACUTE CORONARY SYNDROME
     Dosage: 1.25 MG, UNK
  3. PRAVASTATIN [Concomitant]
     Indication: ACUTE CORONARY SYNDROME
     Dosage: 40 MG, UNK
  4. LOVENOX [Concomitant]
     Indication: ACUTE CORONARY SYNDROME
     Dosage: 0.4 ML, UNK
  5. ASPIRIN [Concomitant]
     Indication: ACUTE CORONARY SYNDROME
     Dosage: 160 MG, UNK
  6. ATARAX [Suspect]
     Dosage: 25 MG, DAILY
     Route: 048
     Dates: start: 20110314, end: 20110326
  7. NEXIUM [Concomitant]
     Indication: ACUTE CORONARY SYNDROME
     Dosage: 20 MG, UNK
  8. PLAVIX [Concomitant]
     Indication: ACUTE CORONARY SYNDROME
     Dosage: 75 MG, UNK

REACTIONS (4)
  - ANTEROGRADE AMNESIA [None]
  - CONFUSIONAL STATE [None]
  - COGNITIVE DISORDER [None]
  - DISORIENTATION [None]
